FAERS Safety Report 17139395 (Version 3)
Quarter: 2019Q4

REPORT INFORMATION
  Report Type: Spontaneous
  Country: US (occurrence: US)
  Receive Date: 20191211
  Receipt Date: 20191227
  Transmission Date: 20200122
  Serious: No
  Sender: FDA-Public Use
  Company Number: US-HORIZON-RAV-0406-2019

PATIENT
  Age: 46 Year
  Sex: Female

DRUGS (11)
  1. FLONASE [Concomitant]
     Active Substance: FLUTICASONE PROPIONATE
     Dosage: PRN
  2. ZOFRAN [Concomitant]
     Active Substance: ONDANSETRON HYDROCHLORIDE
     Dosage: PRN
  3. ESTRACE [Concomitant]
     Active Substance: ESTRADIOL
  4. CITRULLINE [Concomitant]
     Active Substance: CITRULLINE
  5. METOPROLOL. [Concomitant]
     Active Substance: METOPROLOL
     Dosage: 25MG DAILY
  6. RAVICTI [Suspect]
     Active Substance: GLYCEROL PHENYLBUTYRATE
     Indication: ORNITHINE TRANSCARBAMOYLASE DEFICIENCY
     Dosage: 3ML 3 TIMES DAILY
     Route: 048
     Dates: start: 20190913
  7. ATIVAN [Concomitant]
     Active Substance: LORAZEPAM
     Dosage: 0.5MG PRN
  8. ELIQUIS [Concomitant]
     Active Substance: APIXABAN
     Dosage: 5.0MG BID
  9. SYMBICORT [Concomitant]
     Active Substance: BUDESONIDE\FORMOTEROL FUMARATE DIHYDRATE
     Dosage: PRN
  10. ZANTAC [Concomitant]
     Active Substance: RANITIDINE HYDROCHLORIDE
     Dosage: 300MG BID
  11. FARXIGA [Concomitant]
     Active Substance: DAPAGLIFLOZIN PROPANEDIOL
     Dosage: 10 MG Q P.M.

REACTIONS (2)
  - Weight decreased [Unknown]
  - Weight increased [Unknown]
